FAERS Safety Report 4726344-1 (Version None)
Quarter: 2005Q3

REPORT INFORMATION
  Report Type: 
  Country: None (occurrence: None)
  Receive Date: 20050727
  Receipt Date: 20041115
  Transmission Date: 20060218
  Serious: Yes (Death, Hospitalization, Disabling, Other)
  Sender: FDA-Public Use
  Company Number: FR-ABBOTT-04P-056-0280541-00

PATIENT
  Sex: Male
  Weight: 103 kg

DRUGS (21)
  1. HUMIRA [Suspect]
     Indication: RHEUMATOID ARTHRITIS
     Route: 058
     Dates: start: 20040315, end: 20040929
  2. TAMOXIFEN CITRATE [Concomitant]
     Indication: RHEUMATOID ARTHRITIS
     Dosage: 12.5MG
     Dates: start: 20030930, end: 20041014
  3. PREDNISONE [Concomitant]
     Indication: RHEUMATOID ARTHRITIS
     Dates: start: 20031201, end: 20041020
  4. PREDNISONE [Concomitant]
     Indication: ANAEMIA
     Dates: start: 20041021, end: 20050117
  5. ETRETINATE [Concomitant]
     Indication: RHEUMATOID ARTHRITIS
     Dates: start: 20030101, end: 20050117
  6. COLECALCIFEROL [Concomitant]
     Indication: RHEUMATOID ARTHRITIS
     Dates: start: 20030101, end: 20050117
  7. LISINOPRIL [Concomitant]
     Indication: HYPERTENSION
     Dates: start: 19770101, end: 20050117
  8. FUROSEMIDE [Concomitant]
     Indication: HYPERTENSION
     Dates: start: 19770101, end: 20041006
  9. FLUINDIONE [Concomitant]
     Indication: THROMBOSIS PROPHYLAXIS
     Dates: start: 20041014, end: 20041015
  10. PHYTONADIONE [Concomitant]
     Indication: THROMBOSIS PROPHYLAXIS
     Dates: start: 20041016, end: 20041017
  11. POTASSIUM CHLORIDE [Concomitant]
     Indication: HYPOKALAEMIA
     Dates: start: 20041018, end: 20050117
  12. ZOPICLONE [Concomitant]
     Indication: HYPERSOMNIA
     Dates: start: 20041018, end: 20050117
  13. EPOETIN BETA [Concomitant]
     Indication: ANAEMIA
     Dates: start: 20041005, end: 20050117
  14. METHYLPREDNISOLONE SODIUM SUCCINATE [Concomitant]
     Indication: PAIN
     Route: 042
     Dates: start: 20041018, end: 20041020
  15. SIMVASTATIN [Concomitant]
     Indication: HYPERCHOLESTEROLAEMIA
     Dates: start: 19780101, end: 20050117
  16. OMEPRAZOLE [Concomitant]
     Indication: GASTRITIS
     Dates: end: 20050117
  17. TOPALGIC [Concomitant]
     Indication: PAIN
     Dates: start: 20010101, end: 20050117
  18. FOLIC ACID [Concomitant]
     Indication: VITAMIN SUPPLEMENTATION
     Dates: start: 20030106, end: 20050117
  19. LACRY FLUID [Concomitant]
     Indication: DRY EYE
     Dates: end: 20050117
  20. HEPARIN-FRACTION, SODIUM SALT [Concomitant]
     Indication: THROMBOSIS PROPHYLAXIS
     Dates: start: 20041009, end: 20050117
  21. HUMIRA (COMMERCIAL) [Concomitant]
     Indication: RHEUMATOID ARTHRITIS
     Route: 058
     Dates: start: 20031002

REACTIONS (1)
  - REFRACTORY ANAEMIA WITH RINGED SIDEROBLASTS [None]
